FAERS Safety Report 5863220-5 (Version None)
Quarter: 2008Q3

REPORT INFORMATION
  Report Type: 
  Country: None (occurrence: None)
  Receive Date: 20080828
  Receipt Date: 20080821
  Transmission Date: 20090109
  Serious: Yes (Hospitalization)
  Sender: FDA-Public Use
  Company Number: US-ASTRAZENECA-2008UW17140

PATIENT
  Age: 76 Year
  Sex: Female
  Weight: 61.7 kg

DRUGS (6)
  1. CRESTOR [Suspect]
     Indication: BLOOD CHOLESTEROL INCREASED
     Route: 048
     Dates: start: 20080731
  2. TENORMIN [Concomitant]
  3. DIOVAN [Concomitant]
  4. EVISTA [Concomitant]
  5. ASPIRIN [Concomitant]
  6. VITAMIN TAB [Concomitant]

REACTIONS (2)
  - ARTERIAL STENT INSERTION [None]
  - HEADACHE [None]
